FAERS Safety Report 6448925-X (Version None)
Quarter: 2009Q4

REPORT INFORMATION
  Report Type: 
  Country: None (occurrence: None)
  Receive Date: 20091120
  Receipt Date: 20091117
  Transmission Date: 20100525
  Serious: Yes (Congenital Anomaly)
  Sender: FDA-Public Use
  Company Number: A0679349A

PATIENT
  Sex: Female

DRUGS (2)
  1. PAXIL [Suspect]
     Indication: DEPRESSION
     Dates: start: 19970101
  2. VITAMIN TAB [Concomitant]

REACTIONS (14)
  - AFFECTIVE DISORDER [None]
  - AGGRESSION [None]
  - ATRIAL SEPTAL DEFECT [None]
  - ATTENTION DEFICIT/HYPERACTIVITY DISORDER [None]
  - BIPOLAR DISORDER [None]
  - DRUG EXPOSURE DURING PREGNANCY [None]
  - ENURESIS [None]
  - FEAR [None]
  - MATERNAL DRUGS AFFECTING FOETUS [None]
  - MIDDLE INSOMNIA [None]
  - MUSCULOSKELETAL STIFFNESS [None]
  - PSYCHOTIC DISORDER [None]
  - SCREAMING [None]
  - SPEECH DISORDER DEVELOPMENTAL [None]
